FAERS Safety Report 7213614-0 (Version None)
Quarter: 2011Q1

REPORT INFORMATION
  Report Type: 
  Country: None (occurrence: None)
  Receive Date: 20110106
  Receipt Date: 20110103
  Transmission Date: 20110831
  Serious: Yes (Other)
  Sender: FDA-Public Use
  Company Number: CHPA2011US00443

PATIENT
  Age: 56 Year
  Sex: Female

DRUGS (1)
  1. THERAFLU DAYTIME SEVERE COLD + COUGH [Suspect]
     Indication: NASOPHARYNGITIS
     Dosage: 2 DF, QD
     Route: 048
     Dates: end: 20110101

REACTIONS (5)
  - HYPERSENSITIVITY [None]
  - DIARRHOEA [None]
  - THROAT TIGHTNESS [None]
  - RASH PRURITIC [None]
  - SWELLING FACE [None]
